FAERS Safety Report 5166547-8 (Version None)
Quarter: 2006Q4

REPORT INFORMATION
  Report Type: 
  Country: None (occurrence: None)
  Receive Date: 20061129
  Receipt Date: 20061113
  Transmission Date: 20070319
  Serious: Yes (Other)
  Sender: FDA-Public Use
  Company Number: 2006002157

PATIENT
  Age: 48 Year
  Sex: Female

DRUGS (1)
  1. ERLOTINIB (TABLET) (ERLOTINIB HCL) [Suspect]
     Indication: OVARIAN CANCER
     Dosage: 150 MG (QD); ORAL
     Route: 048
     Dates: start: 20060915

REACTIONS (1)
  - BONE SWELLING [None]
